FAERS Safety Report 8392096-X (Version None)
Quarter: 2012Q2

REPORT INFORMATION
  Report Type: 
  Country: None (occurrence: None)
  Receive Date: 20120529
  Receipt Date: 20120523
  Transmission Date: 20120825
  Serious: No
  Sender: FDA-Public Use
  Company Number: US-BAYER-2012-052036

PATIENT
  Age: 56 Year
  Sex: Female

DRUGS (2)
  1. MIACIN [Concomitant]
  2. AVELOX [Suspect]
     Indication: INFECTION
     Route: 048

REACTIONS (2)
  - LABORATORY TEST ABNORMAL [None]
  - MUSCULOSKELETAL DISCOMFORT [None]
